FAERS Safety Report 10146727 (Version 1)
Quarter: 2014Q2

REPORT INFORMATION
  Report Type: Spontaneous
  Country: US (occurrence: None)
  Receive Date: 20140430
  Receipt Date: 20140430
  Transmission Date: 20141212
  Serious: Yes (Hospitalization)
  Sender: FDA-Public Use
  Company Number: None

PATIENT
  Age: 49 Year
  Sex: Female

DRUGS (2)
  1. KETOROLAC [Suspect]
     Indication: PAIN
     Route: 042
     Dates: start: 20140107, end: 20140107
  2. KETOFEN OCULAR DROPS [Concomitant]

REACTIONS (5)
  - Bronchospasm [None]
  - Wheezing [None]
  - Urticaria [None]
  - Lip swelling [None]
  - Face oedema [None]
